FAERS Safety Report 5661122-0 (Version None)
Quarter: 2008Q1

REPORT INFORMATION
  Report Type: 
  Country: None (occurrence: None)
  Receive Date: 20080204
  Receipt Date: 20071016
  Transmission Date: 20080703
  Serious: Yes (Other)
  Sender: FDA-Public Use
  Company Number: PHEH2007US13725

PATIENT
  Sex: Female

DRUGS (1)
  1. EXELON [Suspect]
     Dosage: TRANSDERMAL
     Route: 062

REACTIONS (7)
  - AGITATION [None]
  - CONFUSIONAL STATE [None]
  - DEPRESSION [None]
  - GAIT DISTURBANCE [None]
  - HYPERHIDROSIS [None]
  - MALAISE [None]
  - SOMNOLENCE [None]
